FAERS Safety Report 7220614-3 (Version None)
Quarter: 2011Q1

REPORT INFORMATION
  Report Type: 
  Country: None (occurrence: None)
  Receive Date: 20110111
  Receipt Date: 20110105
  Transmission Date: 20110831
  Serious: Yes (Other)
  Sender: FDA-Public Use
  Company Number: US-PFIZER INC-2011003211

PATIENT
  Sex: Female
  Weight: 70.3 kg

DRUGS (7)
  1. PREVACID [Concomitant]
     Indication: GASTROOESOPHAGEAL REFLUX DISEASE
     Dosage: 30 MG, 3X/DAY
     Dates: start: 20070101
  2. CHANTIX [Suspect]
     Indication: SMOKING CESSATION THERAPY
     Dosage: 0.5 MG, 1X/DAY
     Dates: start: 20090101, end: 20090101
  3. ESTRADIOL [Concomitant]
     Indication: HORMONE LEVEL ABNORMAL
     Dosage: UNK
     Dates: start: 20070101
  4. CHANTIX [Suspect]
     Dosage: 1 MG, 2X/DAY
     Route: 048
     Dates: start: 20090101, end: 20090101
  5. CELEBREX [Concomitant]
     Indication: ARTHRITIS
     Dosage: 200 MG, DAILY
     Dates: start: 20070101
  6. ATENOLOL [Concomitant]
     Indication: HYPERTENSION
     Dosage: 25 MG, DAILY
     Dates: start: 20070101
  7. LISINOPRIL AND HYDROCHLOROTHIAZIDE [Concomitant]
     Indication: HYPERTENSION
     Dosage: 20/12.5 MG, 2X/DAY
     Dates: start: 20070101

REACTIONS (4)
  - INTERVERTEBRAL DISC OPERATION [None]
  - STAPHYLOCOCCAL INFECTION [None]
  - BURNING SENSATION [None]
  - OVARIAN CANCER [None]
